FAERS Safety Report 9782537 (Version 1)
Quarter: 2013Q4

REPORT INFORMATION
  Report Type: Report from Study
  Country: CA (occurrence: BR)
  Receive Date: 20131226
  Receipt Date: 20131226
  Transmission Date: 20140711
  Serious: Yes (Other)
  Sender: FDA-Public Use
  Company Number: PHHY2013BR151608

PATIENT
  Sex: Female
  Weight: 54 kg

DRUGS (5)
  1. ACLASTA [Suspect]
     Indication: OSTEOPOROSIS
     Dosage: 5 MG, UNK
     Route: 042
     Dates: start: 2012
  2. CALCIUM +D3 [Concomitant]
     Indication: OSTEOPOROSIS
     Dosage: 600 MG (1 TABLET), DAILY
     Route: 048
     Dates: start: 201305
  3. MICARDIS [Concomitant]
     Dosage: UNK UKN, UNK
     Dates: start: 2013
  4. MANIVASC [Concomitant]
     Indication: HYPERTENSION
     Dosage: 20 MG (2 TABLETS), DAILY
     Route: 048
     Dates: start: 201309
  5. PURAN T4 [Concomitant]
     Indication: THYROID DISORDER
     Dosage: 25 MG (1 TABLET), DAILY
     Route: 048
     Dates: start: 201309

REACTIONS (3)
  - Depression [Unknown]
  - Sleep disorder [Unknown]
  - Blood pressure increased [Unknown]
